FAERS Safety Report 9203147 (Version 2)
Quarter: 2013Q2

REPORT INFORMATION
  Report Type: Spontaneous
  Country: BR (occurrence: BR)
  Receive Date: 20130402
  Receipt Date: 20130412
  Transmission Date: 20140414
  Serious: Yes (Hospitalization)
  Sender: FDA-Public Use
  Company Number: BR-AMGEN-BRASP2013021844

PATIENT
  Age: 64 Year
  Sex: Female
  Weight: 58 kg

DRUGS (4)
  1. ENBREL [Suspect]
     Indication: RHEUMATOID ARTHRITIS
     Dosage: 50 MG, 1X/WEEK
     Route: 058
     Dates: start: 201207
  2. ENBREL [Suspect]
     Dosage: 50 MG, QWK
     Route: 058
     Dates: start: 201108
  3. VENLAFAXINE [Concomitant]
     Dosage: STRENGTH 75MG AT 2 TABLETS DAILY
  4. CLONAZEPAM [Concomitant]
     Dosage: 2 MG, UNK

REACTIONS (4)
  - Diarrhoea [Unknown]
  - Asthenia [Unknown]
  - Feeling abnormal [Unknown]
  - Depression [Unknown]
